FAERS Safety Report 10752198 (Version 1)
Quarter: 2015Q1

REPORT INFORMATION
  Report Type: Report from Study
  Country: US (occurrence: US)
  Receive Date: 20150130
  Receipt Date: 20150130
  Transmission Date: 20150721
  Serious: Yes (Hospitalization, Other)
  Sender: FDA-Public Use
  Company Number: US-GILEAD-2015-0133756

PATIENT
  Age: 64 Year
  Sex: Male

DRUGS (1)
  1. EFAVIRENZ/EMTRICITABINE/TENOFOVIR DISOPROXIL FUMARATE [Suspect]
     Active Substance: EFAVIRENZ\EMTRICITABINE\TENOFOVIR DISOPROXIL FUMARATE
     Indication: HIV INFECTION
     Dosage: 1100 MG, UNK
     Route: 048

REACTIONS (12)
  - Malaise [Unknown]
  - Cerebrovascular accident [Unknown]
  - Visual impairment [Unknown]
  - Neoplasm malignant [Unknown]
  - Nausea [Unknown]
  - Neuropathy peripheral [Unknown]
  - Myocardial infarction [Unknown]
  - Spinal column injury [Unknown]
  - Gait disturbance [Unknown]
  - Pain [Unknown]
  - Cognitive disorder [Unknown]
  - Hearing impaired [Unknown]

NARRATIVE: CASE EVENT DATE: 1983
